FAERS Safety Report 4643506-2 (Version None)
Quarter: 2005Q2

REPORT INFORMATION
  Report Type: 
  Country: None (occurrence: None)
  Receive Date: 20050325
  Receipt Date: 20050110
  Transmission Date: 20051028
  Serious: Yes (Hospitalization)
  Sender: FDA-Public Use
  Company Number: IND-AE-05-SAN-003

PATIENT
  Age: 76 Year
  Sex: Male
  Weight: 127.0072 kg

DRUGS (11)
  1. SANCTURA [Suspect]
     Indication: BLADDER DISORDER
     Dosage: 20MG - QHS - ORAL
     Route: 048
     Dates: start: 20041213, end: 20041201
  2. OXYTROL [Suspect]
     Indication: BLADDER DISORDER
     Dosage: 1 PATCH - 2/WEEK
     Route: 062
     Dates: start: 20041101, end: 20041220
  3. ACTOS [Concomitant]
  4. K-DUR 10 [Concomitant]
  5. INSULIN [Concomitant]
  6. METFORMIN HCL [Concomitant]
  7. GLIPIZIDE [Concomitant]
  8. LOTENSIN [Concomitant]
  9. FUROSEMIDE [Concomitant]
  10. LIPITOR [Concomitant]
  11. ACETYL SALICYLIC ACID USP BAT [Concomitant]

REACTIONS (2)
  - CONSTIPATION [None]
  - VISION BLURRED [None]
